FAERS Safety Report 13757561 (Version 1)
Quarter: 2017Q3

REPORT INFORMATION
  Report Type: Spontaneous
  Country: US (occurrence: US)
  Receive Date: 20170717
  Receipt Date: 20170717
  Transmission Date: 20171127
  Serious: No
  Sender: FDA-Public Use
  Company Number: US-ENDO PHARMACEUTICALS INC-2017-003130

PATIENT
  Age: 79 Year
  Sex: Female

DRUGS (3)
  1. NYSTATIN CREAM [Suspect]
     Active Substance: NYSTATIN
     Indication: PRURITUS
  2. NYSTATIN CREAM [Suspect]
     Active Substance: NYSTATIN
     Indication: SKIN BURNING SENSATION
     Dosage: UNK UNK, BID
     Route: 061
     Dates: start: 201705, end: 201705
  3. NYSTATIN CREAM [Suspect]
     Active Substance: NYSTATIN
     Indication: ERYTHEMA

REACTIONS (3)
  - Skin burning sensation [Unknown]
  - Pruritus [Unknown]
  - Erythema [Unknown]

NARRATIVE: CASE EVENT DATE: 201705
